FAERS Safety Report 8291905-2 (Version None)
Quarter: 2012Q2

REPORT INFORMATION
  Report Type: 
  Country: None (occurrence: None)
  Receive Date: 20120417
  Receipt Date: 20110504
  Transmission Date: 20120825
  Serious: No
  Sender: FDA-Public Use
  Company Number: US-ASTRAZENECA-2011SE26356

PATIENT
  Age: 53 Year
  Sex: Female
  Weight: 100.9 kg

DRUGS (18)
  1. ACETAMINOPHEN [Concomitant]
  2. FLUOCINOLONE ACETONIDE [Concomitant]
  3. AMLACTIN [Concomitant]
  4. LORATADINE [Concomitant]
  5. NEXIUM [Suspect]
     Route: 048
  6. DILTIAZEM HYDROCHLORIDE [Concomitant]
  7. IBUPROFEN [Concomitant]
  8. METRONIAZOLE [Concomitant]
  9. ALBUTEROL [Concomitant]
  10. HYDROXYCHLOROQUINE SULFATE [Concomitant]
  11. OLOPATADINE [Concomitant]
  12. PROTOPIC [Concomitant]
  13. ALPHAGAN [Concomitant]
  14. FLUTICASONE PROPIONATE [Concomitant]
  15. HYDROCHLOROTHIAZIDE [Concomitant]
  16. OCEAN NASAL SPRAY [Concomitant]
  17. FLINTSTONE [Concomitant]
  18. VENTOLIN HFA 108 [Concomitant]
     Indication: DYSPNOEA

REACTIONS (5)
  - IRIDOCYCLITIS [None]
  - RHINITIS ALLERGIC [None]
  - SARCOIDOSIS [None]
  - SLEEP APNOEA SYNDROME [None]
  - GASTROOESOPHAGEAL REFLUX DISEASE [None]
